FAERS Safety Report 6915392-9 (Version None)
Quarter: 2010Q3

REPORT INFORMATION
  Report Type: 
  Country: None (occurrence: None)
  Receive Date: 20100809
  Receipt Date: 20100405
  Transmission Date: 20110219
  Serious: Yes (Hospitalization)
  Sender: FDA-Public Use
  Company Number: US-ABBOTT-10P-163-0636420-00

PATIENT
  Sex: Male
  Weight: 81.72 kg

DRUGS (2)
  1. DEPAKOTE ER [Suspect]
     Indication: MANIA
     Dates: start: 20090701
  2. DEPAKOTE ER [Suspect]
     Indication: SCHIZOPHRENIA

REACTIONS (1)
  - PANCREATITIS [None]
